FAERS Safety Report 4907427-X (Version None)
Quarter: 2006Q1

REPORT INFORMATION
  Report Type: 
  Country: None (occurrence: None)
  Receive Date: 20060208
  Receipt Date: 20060208
  Transmission Date: 20060701
  Serious: Yes (Other)
  Sender: FDA-Public Use
  Company Number: None

PATIENT
  Age: 44 Year
  Sex: Male
  Weight: 90.7194 kg

DRUGS (2)
  1. GENTIAN VIOLET [Suspect]
     Indication: EAR INFECTION
     Dosage: ONCE OTIC
     Route: 001
     Dates: start: 20051229, end: 20051229
  2. GENTIAN VIOLET [Suspect]
     Indication: FUNGAL INFECTION
     Dosage: ONCE OTIC
     Route: 001
     Dates: start: 20051229, end: 20051229

REACTIONS (5)
  - BALANCE DISORDER [None]
  - CONTRAINDICATION TO MEDICAL TREATMENT [None]
  - DEAFNESS [None]
  - MEDICATION ERROR [None]
  - TINNITUS [None]
